FAERS Safety Report 17492788 (Version 6)
Quarter: 2023Q2

REPORT INFORMATION
  Report Type: Other
  Country: CA (occurrence: None)
  Receive Date: 20200304
  Receipt Date: 20230427
  Transmission Date: 20230721
  Serious: Yes (Other)
  Sender: FDA-Public Use
  Company Number: CA-ROCHE-2560118

PATIENT
  Age: 41 Year
  Sex: Female

DRUGS (1)
  1. OCREVUS [Suspect]
     Active Substance: OCRELIZUMAB
     Indication: Relapsing-remitting multiple sclerosis
     Dosage: ON DAY 0, ON DAY 14 AND THEN 600 MG ONCE IN SIX MONTH.
     Route: 042
     Dates: start: 20180820

REACTIONS (2)
  - Cholelithiasis [Unknown]
  - Nitrite urine present [Unknown]

NARRATIVE: CASE EVENT DATE: 20200214
